FAERS Safety Report 25863713 (Version 1)
Quarter: 2025Q3

REPORT INFORMATION
  Report Type: Spontaneous
  Country: US (occurrence: US)
  Receive Date: 20250930
  Receipt Date: 20250930
  Transmission Date: 20251021
  Serious: No
  Sender: PADAGIS
  Company Number: US-PADAGIS-2025PAD01178

PATIENT

DRUGS (1)
  1. BACITRACIN [Suspect]
     Active Substance: BACITRACIN
     Indication: Product used for unknown indication
     Route: 065

REACTIONS (1)
  - Drug hypersensitivity [Unknown]
